FAERS Safety Report 13521090 (Version 4)
Quarter: 2017Q3

REPORT INFORMATION
  Report Type: Report from Study
  Country: US (occurrence: US)
  Receive Date: 20170508
  Receipt Date: 20170824
  Transmission Date: 20171127
  Serious: Yes (Other)
  Sender: FDA-Public Use
  Company Number: US-AMGEN-USASP2017067289

PATIENT
  Age: 68 Year
  Sex: Female

DRUGS (11)
  1. ENBREL [Suspect]
     Active Substance: ETANERCEPT
     Indication: RHEUMATOID ARTHRITIS
     Dosage: 50 MG, QWK
     Route: 065
     Dates: start: 201703, end: 20170421
  2. METFORMIN [Concomitant]
     Active Substance: METFORMIN HYDROCHLORIDE
  3. PREDNISONE. [Concomitant]
     Active Substance: PREDNISONE
     Dosage: 16 AND 18 MG, QD
  4. ENBREL [Suspect]
     Active Substance: ETANERCEPT
     Indication: POLYMYALGIA RHEUMATICA
  5. FENTANYL. [Concomitant]
     Active Substance: FENTANYL
     Dosage: 50 MG, UNK
  6. XANAX [Concomitant]
     Active Substance: ALPRAZOLAM
     Dosage: UNK
  7. ENBREL [Suspect]
     Active Substance: ETANERCEPT
     Indication: FIBROMYALGIA
  8. ENBREL [Suspect]
     Active Substance: ETANERCEPT
     Indication: PSORIASIS
  9. OXYCODONE [Suspect]
     Active Substance: OXYCODONE
     Indication: PRODUCT USED FOR UNKNOWN INDICATION
     Dosage: UNK
     Route: 065
  10. ENBREL [Suspect]
     Active Substance: ETANERCEPT
     Indication: OSTEOARTHRITIS
  11. METOPROLOL. [Suspect]
     Active Substance: METOPROLOL
     Indication: BLOOD PRESSURE MEASUREMENT
     Dosage: UNK
     Route: 065

REACTIONS (29)
  - Presyncope [Unknown]
  - Cardiac output decreased [Unknown]
  - Swollen tongue [Unknown]
  - Dyspnoea [Unknown]
  - Mental fatigue [Unknown]
  - Rheumatoid arthritis [Unknown]
  - Injection site rash [Recovered/Resolved]
  - Blood pressure increased [Unknown]
  - Muscle spasms [Unknown]
  - Sensory disturbance [Unknown]
  - Chest discomfort [Unknown]
  - Sinusitis [Unknown]
  - Nasopharyngitis [Unknown]
  - Ligament rupture [Unknown]
  - Snoring [Unknown]
  - Sleep disorder [Unknown]
  - Malaise [Unknown]
  - Fall [Unknown]
  - Skin discolouration [Unknown]
  - Rocky mountain spotted fever [Unknown]
  - Blindness [Unknown]
  - Chest pain [Unknown]
  - Visual impairment [Unknown]
  - Heart rate increased [Unknown]
  - Breast mass [Unknown]
  - Off label use [Unknown]
  - Pain in extremity [Unknown]
  - Sleep apnoea syndrome [Unknown]
  - Gait disturbance [Unknown]

NARRATIVE: CASE EVENT DATE: 2017
